FAERS Safety Report 7161174-5 (Version None)
Quarter: 2010Q4

REPORT INFORMATION
  Report Type: 
  Country: None (occurrence: None)
  Receive Date: 20101215
  Receipt Date: 20101206
  Transmission Date: 20110411
  Serious: No
  Sender: FDA-Public Use
  Company Number: US-BIOGENIDEC-2010BI042998

PATIENT
  Age: 35 Year
  Sex: Female

DRUGS (2)
  1. TYSABRI [Suspect]
     Indication: MULTIPLE SCLEROSIS
     Route: 042
     Dates: start: 20100819
  2. AVONEX [Concomitant]
     Indication: MULTIPLE SCLEROSIS
     Route: 030

REACTIONS (8)
  - DYSPNOEA [None]
  - FLUID RETENTION [None]
  - HEADACHE [None]
  - PYREXIA [None]
  - RESPIRATORY TRACT CONGESTION [None]
  - SINUSITIS [None]
  - SWELLING [None]
  - TONSILLECTOMY [None]
